FAERS Safety Report 16460057 (Version 1)
Quarter: 2019Q2

REPORT INFORMATION
  Report Type: Spontaneous
  Country: US (occurrence: US)
  Receive Date: 20190510
  Receipt Date: 20190510
  Transmission Date: 20190711
  Serious: Yes (Hospitalization)
  Sender: FDA-Public Use
  Company Number: None

PATIENT
  Age: 63 Year
  Sex: Male

DRUGS (2)
  1. IRINOTECAN HCL SDV 20MG/ML NOVAPLUS/HOSPIRA [Suspect]
     Active Substance: IRINOTECAN HYDROCHLORIDE
     Indication: PANCREATIC CARCINOMA
     Dosage: ?          OTHER FREQUENCY:EVERY 14 DAYS;?
     Route: 042
     Dates: start: 20190226
  2. NEULASTA [Suspect]
     Active Substance: PEGFILGRASTIM
     Indication: PANCREATIC CARCINOMA
     Dosage: ?          OTHER DOSE:6MG/0.6ML;OTHER FREQUENCY:EVERY 14 DAYS;?
     Route: 042
     Dates: start: 20190226

REACTIONS (2)
  - Tremor [None]
  - Pyrexia [None]

NARRATIVE: CASE EVENT DATE: 201904
